FAERS Safety Report 4497275-X (Version None)
Quarter: 2004Q4

REPORT INFORMATION
  Report Type: 
  Country: None (occurrence: None)
  Receive Date: 20041110
  Receipt Date: 20041008
  Transmission Date: 20050328
  Serious: Yes (Hospitalization)
  Sender: FDA-Public Use
  Company Number: US-JNJFOC-20041003129

PATIENT
  Age: 78 Year
  Sex: Female

DRUGS (19)
  1. DURAGESIC [Suspect]
     Route: 062
     Dates: start: 20031201
  2. VERSED [Concomitant]
     Indication: COLONOSCOPY
     Dates: start: 20041027, end: 20041027
  3. AVAPRO [Concomitant]
  4. PENTASA [Concomitant]
     Indication: CROHN'S DISEASE
  5. PRILOSEC [Concomitant]
  6. EVISTA [Concomitant]
     Indication: OSTEOPOROSIS
  7. ASPIRIN [Concomitant]
  8. CALCIUM [Concomitant]
  9. MIACALCIN [Concomitant]
     Indication: OSTEOPOROSIS
     Route: 055
  10. OCUVITE [Concomitant]
  11. OCUVITE [Concomitant]
  12. OCUVITE [Concomitant]
  13. FOLIC ACID [Concomitant]
  14. XOPENEX [Concomitant]
  15. B6 AND B12 [Concomitant]
  16. ADVAIR [Concomitant]
  17. ADVAIR [Concomitant]
  18. PROVENTIL [Concomitant]
  19. MILK OF MAGNESIA TAB [Concomitant]

REACTIONS (10)
  - APPLICATION SITE PRURITUS [None]
  - CARCINOEMBRYONIC ANTIGEN INCREASED [None]
  - COLONIC POLYP [None]
  - DERMATITIS EXFOLIATIVE [None]
  - HAEMOGLOBIN DECREASED [None]
  - MEAN CELL VOLUME ABNORMAL [None]
  - OEDEMA PERIPHERAL [None]
  - PHARMACEUTICAL PRODUCT COMPLAINT [None]
  - PLATELET COUNT INCREASED [None]
  - RED BLOOD CELL COUNT DECREASED [None]
